FAERS Safety Report 7408566-4 (Version None)
Quarter: 2011Q2

REPORT INFORMATION
  Report Type: 
  Country: None (occurrence: None)
  Receive Date: 20110401
  Receipt Date: 20110321
  Transmission Date: 20111010
  Serious: No
  Sender: FDA-Public Use
  Company Number: FK201100500

PATIENT
  Age: 1 Day
  Sex: Female
  Weight: 1.14 kg

DRUGS (9)
  1. TRACE-4 MULTIPLE TRACE [Suspect]
     Indication: PARENTERAL NUTRITION
     Dosage: 0.34 ML, ONCE, INTRAVENOUS (NOT OTHERWISE SPECIFIED)
     Route: 042
     Dates: start: 20110318, end: 20110319
  2. PEDIATRIC MULTIVITAMINS [Concomitant]
  3. STERILE WATER FOR INJECTION [Concomitant]
  4. POTASSIUM ACETATE [Concomitant]
  5. D70% [Concomitant]
  6. SODIUM PHOSPHATE [Concomitant]
  7. CALCIUM GLUCONATE [Suspect]
     Indication: PARENTERAL NUTRITION
     Dosage: 10.04 ML,. ONCE, INTRAVENOUS (NOT OTHERWISE SPECIFIED)
     Route: 042
     Dates: start: 20110318, end: 20110319
  8. SODIUM CHLORIDE [Concomitant]
  9. L-CYSTEINE [Concomitant]

REACTIONS (5)
  - GLYCOSURIA [None]
  - POLYURIA [None]
  - HYPOKALAEMIA [None]
  - TOXICITY TO VARIOUS AGENTS [None]
  - HYPOGLYCAEMIA [None]
